FAERS Safety Report 7307250-5 (Version None)
Quarter: 2011Q1

REPORT INFORMATION
  Report Type: 
  Country: None (occurrence: None)
  Receive Date: 20110223
  Receipt Date: 20110217
  Transmission Date: 20110831
  Serious: No
  Sender: FDA-Public Use
  Company Number: US-PFIZER INC-2011004147

PATIENT
  Sex: Male
  Weight: 82 kg

DRUGS (8)
  1. DRISDOL [Concomitant]
     Dosage: UNK
  2. CHANTIX [Suspect]
     Indication: SMOKING CESSATION THERAPY
     Dosage: 0.5 MG, 1X/DAY
     Route: 048
     Dates: start: 20101227
  3. KLONOPIN [Concomitant]
     Dosage: UNK
  4. CHANTIX [Suspect]
     Dosage: 1 MG, 2X/DAY
  5. CHANTIX [Suspect]
     Dosage: UNK
     Dates: start: 20110201
  6. HYDROCODONE [Concomitant]
     Dosage: UNK
  7. SOMA [Concomitant]
     Dosage: UNK
  8. CYMBALTA [Concomitant]
     Dosage: UNK

REACTIONS (3)
  - GASTRIC DISORDER [None]
  - ABNORMAL DREAMS [None]
  - COUGH [None]
